FAERS Safety Report 4673111-3 (Version None)
Quarter: 2005Q2

REPORT INFORMATION
  Report Type: 
  Country: None (occurrence: None)
  Receive Date: 20050524
  Receipt Date: 20050524
  Transmission Date: 20051028
  Serious: Yes (Hospitalization)
  Sender: FDA-Public Use
  Company Number: None

PATIENT
  Age: 8 Year
  Sex: Male
  Weight: 22.6799 kg

DRUGS (1)
  1. ADDERALL XR 15 [Suspect]
     Indication: ATTENTION DEFICIT/HYPERACTIVITY DISORDER
     Dosage: ONE TAB  Q AM ORAL
     Route: 048
     Dates: start: 20040721, end: 20040721

REACTIONS (13)
  - BLOOD PRESSURE INCREASED [None]
  - BONE PAIN [None]
  - CRYING [None]
  - DILATATION ATRIAL [None]
  - DRUG TOXICITY [None]
  - FEELING ABNORMAL [None]
  - HEART RATE INCREASED [None]
  - INSOMNIA [None]
  - LOGORRHOEA [None]
  - MEMORY IMPAIRMENT [None]
  - MUSCULOSKELETAL STIFFNESS [None]
  - PSYCHOTIC DISORDER [None]
  - TIC [None]
